FAERS Safety Report 6359492-3 (Version None)
Quarter: 2009Q3

REPORT INFORMATION
  Report Type: 
  Country: None (occurrence: None)
  Receive Date: 20090917
  Receipt Date: 20090707
  Transmission Date: 20100115
  Serious: No
  Sender: FDA-Public Use
  Company Number: US-BAYER-200925703NA

PATIENT
  Age: 67 Year
  Sex: Male

DRUGS (1)
  1. NEXAVAR [Suspect]
     Indication: DRUG USE FOR UNKNOWN INDICATION
     Route: 048
     Dates: end: 20080701

REACTIONS (1)
  - PALMAR-PLANTAR ERYTHRODYSAESTHESIA SYNDROME [None]
